FAERS Safety Report 5448981-1 (Version None)
Quarter: 2007Q3

REPORT INFORMATION
  Report Type: 
  Country: None (occurrence: None)
  Receive Date: 20070803
  Receipt Date: 20070518
  Transmission Date: 20080115
  Serious: No
  Sender: FDA-Public Use
  Company Number: 200711571BWH

PATIENT
  Sex: Female

DRUGS (9)
  1. NEXAVAR [Suspect]
     Indication: METASTASES TO ABDOMINAL WALL
     Dosage: ORAL
     Route: 048
     Dates: start: 20070514
  2. NEXAVAR [Suspect]
     Indication: SMALL CELL LUNG CANCER STAGE UNSPECIFIED
     Dosage: ORAL
     Route: 048
     Dates: start: 20070514
  3. MULTI-VITAMIN [Concomitant]
  4. MAGNESIUM SULFATE [Concomitant]
  5. SYNTHROID [Concomitant]
  6. LOVENOX [Concomitant]
  7. POTASSIUM SUPPLEMENT [Concomitant]
  8. ALIMTA [Concomitant]
  9. ERBITUX [Concomitant]

REACTIONS (2)
  - PRURITUS [None]
  - RASH [None]
